FAERS Safety Report 6142208-3 (Version None)
Quarter: 2009Q2

REPORT INFORMATION
  Report Type: 
  Country: None (occurrence: None)
  Receive Date: 20090403
  Receipt Date: 20070612
  Transmission Date: 20091009
  Serious: Yes (Hospitalization, Other)
  Sender: FDA-Public Use
  Company Number: US-ASTRAZENECA-2006UW11287

PATIENT
  Age: 44 Year
  Sex: Female
  Weight: 84.1 kg

DRUGS (14)
  1. SEROQUEL [Suspect]
     Indication: SCHIZOPHRENIA, PARANOID TYPE
     Dosage: 100-600 MG
     Route: 048
     Dates: start: 20000101, end: 20050928
  2. SEROQUEL [Suspect]
     Indication: DEPRESSION
     Dosage: 100-600 MG
     Route: 048
     Dates: start: 20000101, end: 20050928
  3. ABILIFY [Concomitant]
  4. ACTOS [Concomitant]
  5. AMARYL [Concomitant]
  6. PRAVACHOL [Concomitant]
  7. EFFEXOR XR [Concomitant]
  8. LORAZEPAM [Concomitant]
  9. LABETALOL HCL [Concomitant]
  10. CLONAZEPAM [Concomitant]
  11. BYETTA [Concomitant]
  12. GEODON [Concomitant]
  13. ZOCOR [Concomitant]
  14. METFORMIN HCL [Concomitant]

REACTIONS (15)
  - CYSTOCELE [None]
  - DIABETES MELLITUS [None]
  - DYSURIA [None]
  - EXCORIATION [None]
  - HYPERCHOLESTEROLAEMIA [None]
  - HYPERTENSION [None]
  - LIPOMATOSIS [None]
  - MAJOR DEPRESSION [None]
  - OBESITY [None]
  - PANCREATITIS [None]
  - PRURITUS [None]
  - RECTOCELE [None]
  - SCHIZOID PERSONALITY DISORDER [None]
  - SINUSITIS [None]
  - URINARY TRACT INFECTION [None]
